FAERS Safety Report 16383802 (Version 1)
Quarter: 2019Q2

REPORT INFORMATION
  Report Type: Spontaneous
  Country: US (occurrence: US)
  Receive Date: 20190531
  Receipt Date: 20190531
  Transmission Date: 20190711
  Serious: Yes (Hospitalization)
  Sender: FDA-Public Use
  Company Number: None

PATIENT
  Age: 47 Year
  Sex: Female
  Weight: 76.8 kg

DRUGS (1)
  1. PERTUZUMAB. [Suspect]
     Active Substance: PERTUZUMAB
     Indication: BREAST CANCER
     Dosage: ?          OTHER FREQUENCY:ONCE;?
     Route: 042
     Dates: start: 20190423, end: 20190423

REACTIONS (5)
  - Platelet count decreased [None]
  - Mucosal haemorrhage [None]
  - Immune thrombocytopenic purpura [None]
  - Contusion [None]
  - Petechiae [None]

NARRATIVE: CASE EVENT DATE: 20190502
